FAERS Safety Report 18664458 (Version 3)
Quarter: 2021Q1

REPORT INFORMATION
  Report Type: Spontaneous
  Country: GB (occurrence: GB)
  Receive Date: 20201225
  Receipt Date: 20210204
  Transmission Date: 20210419
  Serious: Yes (Life-Threatening, Other)
  Sender: FDA-Public Use
  Company Number: GB-JNJFOC-20201243505

PATIENT
  Age: 35 Year
  Sex: Female

DRUGS (6)
  1. TREVICTA [Suspect]
     Active Substance: PALIPERIDONE PALMITATE
     Indication: SCHIZOPHRENIA
     Route: 030
     Dates: start: 20170316, end: 20180223
  2. TREVICTA [Suspect]
     Active Substance: PALIPERIDONE PALMITATE
  3. VENLAFAXINE [Concomitant]
     Active Substance: VENLAFAXINE HYDROCHLORIDE
  4. PARACETAMOL [Suspect]
     Active Substance: ACETAMINOPHEN
     Indication: PRODUCT USED FOR UNKNOWN INDICATION
     Route: 065
  5. RISPERIDONE. [Concomitant]
     Active Substance: RISPERIDONE
  6. TREVICTA [Suspect]
     Active Substance: PALIPERIDONE PALMITATE

REACTIONS (3)
  - Suicide attempt [Recovered/Resolved]
  - Liver function test abnormal [Unknown]
  - Intentional overdose [Recovered/Resolved]

NARRATIVE: CASE EVENT DATE: 20180209
